FAERS Safety Report 7884995-X (Version None)
Quarter: 2011Q4

REPORT INFORMATION
  Report Type: 
  Country: None (occurrence: None)
  Receive Date: 20111102
  Receipt Date: 20111021
  Transmission Date: 20120403
  Serious: Yes (Other)
  Sender: FDA-Public Use
  Company Number: CA-JNJFOC-20111010938

PATIENT
  Sex: Female
  Weight: 62 kg

DRUGS (3)
  1. METFORMIN HCL [Concomitant]
     Route: 048
  2. IMURAN [Concomitant]
     Route: 048
  3. REMICADE [Suspect]
     Indication: CROHN'S DISEASE
     Route: 042
     Dates: start: 20061001

REACTIONS (2)
  - FISTULA [None]
  - GLYCOSYLATED HAEMOGLOBIN INCREASED [None]
